FAERS Safety Report 17117399 (Version 2)
Quarter: 2020Q1

REPORT INFORMATION
  Report Type: Report from Study
  Country: US (occurrence: US)
  Receive Date: 20191205
  Receipt Date: 20200113
  Transmission Date: 20200409
  Serious: Yes (Death, Hospitalization)
  Sender: FDA-Public Use
  Company Number: US-ACTELION-A-NJ2018-173733

PATIENT
  Age: 55 Year
  Sex: Female
  Weight: 59.41 kg

DRUGS (10)
  1. OPSUMIT [Suspect]
     Active Substance: MACITENTAN
     Indication: PULMONARY ARTERIAL HYPERTENSION
     Dosage: 10 MG, QD
     Route: 048
     Dates: end: 20180828
  2. OXYGEN. [Concomitant]
     Active Substance: OXYGEN
  3. ADEMPAS [Suspect]
     Active Substance: RIOCIGUAT
     Indication: PRODUCT USED FOR UNKNOWN INDICATION
     Dosage: 0.5 MG
     Route: 065
  4. ADEMPAS [Suspect]
     Active Substance: RIOCIGUAT
     Dosage: 1 MG, TID
     Route: 065
  5. DOXYCYCLINE. [Concomitant]
     Active Substance: DOXYCYCLINE
     Dosage: UNK, BID
  6. SILDENAFIL. [Concomitant]
     Active Substance: SILDENAFIL
     Indication: PULMONARY ARTERIAL HYPERTENSION
  7. ELIQUIS [Concomitant]
     Active Substance: APIXABAN
  8. CEFDINIR. [Suspect]
     Active Substance: CEFDINIR
     Indication: PRODUCT USED FOR UNKNOWN INDICATION
     Route: 065
  9. LETAIRIS [Concomitant]
     Active Substance: AMBRISENTAN
     Dosage: UNK
     Dates: end: 201808
  10. REMODULIN [Suspect]
     Active Substance: TREPROSTINIL
     Indication: PRODUCT USED FOR UNKNOWN INDICATION
     Dosage: 29 NG/KG, PER MIN
     Route: 042

REACTIONS (29)
  - Complications of transplanted lung [Fatal]
  - Acne [Unknown]
  - Epistaxis [Recovered/Resolved]
  - Abdominal discomfort [Unknown]
  - Presyncope [Unknown]
  - Blood pressure measurement [Unknown]
  - Condition aggravated [Unknown]
  - Diarrhoea [Unknown]
  - Haemorrhage [Fatal]
  - Abdominal distension [Unknown]
  - Syncope [Not Recovered/Not Resolved]
  - Catheter site erythema [Unknown]
  - Headache [Unknown]
  - Infusion site discharge [Unknown]
  - Infusion site pain [Unknown]
  - Catheter site pain [Unknown]
  - Fatigue [Unknown]
  - Secretion discharge [Not Recovered/Not Resolved]
  - Abdominal pain [Not Recovered/Not Resolved]
  - Dizziness [Unknown]
  - Skin abrasion [Unknown]
  - Chest discomfort [Unknown]
  - Catheter site inflammation [Unknown]
  - Fluid retention [Not Recovered/Not Resolved]
  - Blood pressure decreased [Not Recovered/Not Resolved]
  - Abdominal pain upper [Unknown]
  - Dyspnoea [Recovering/Resolving]
  - Decreased activity [Unknown]
  - Peripheral swelling [Unknown]

NARRATIVE: CASE EVENT DATE: 20190205
